FAERS Safety Report 10152396 (Version 3)
Quarter: 2014Q2

REPORT INFORMATION
  Report Type: Report from Study
  Country: CA (occurrence: CA)
  Receive Date: 20140505
  Receipt Date: 20140527
  Transmission Date: 20141212
  Serious: Yes (Death)
  Sender: FDA-Public Use
  Company Number: CA-JNJFOC-20140500813

PATIENT
  Age: 11 Year
  Sex: Male
  Weight: 21 kg

DRUGS (1)
  1. REMICADE [Suspect]
     Indication: HISTIOCYTOSIS
     Dosage: 150MG
     Route: 042
     Dates: start: 20130718, end: 20140415

REACTIONS (2)
  - Death [Fatal]
  - Off label use [Unknown]
